FAERS Safety Report 25532913 (Version 1)
Quarter: 2025Q3

REPORT INFORMATION
  Report Type: Other
  Country: GB (occurrence: GB)
  Receive Date: 20250709
  Receipt Date: 20250709
  Transmission Date: 20251020
  Serious: Yes (Death, Other)
  Sender: STRIDES
  Company Number: None

PATIENT
  Age: 43 Year
  Sex: Female
  Weight: 86 kg

DRUGS (1)
  1. METHYLPHENIDATE [Suspect]
     Active Substance: METHYLPHENIDATE
     Indication: Attention deficit hyperactivity disorder
     Route: 065
     Dates: start: 20240911

REACTIONS (2)
  - Sudden death [Fatal]
  - Hypertension [Unknown]

NARRATIVE: CASE EVENT DATE: 20250404
